FAERS Safety Report 19613968 (Version 1)
Quarter: 2021Q3

REPORT INFORMATION
  Report Type: Spontaneous
  Country: US (occurrence: US)
  Receive Date: 20210727
  Receipt Date: 20210727
  Transmission Date: 20211014
  Serious: Yes (Other)
  Sender: FDA-Public Use
  Company Number: US-BAYER-2021-180858

PATIENT
  Age: 22 Year
  Sex: Female

DRUGS (12)
  1. AMPICILLIN [Suspect]
     Active Substance: AMPICILLIN
     Indication: PRETERM PREMATURE RUPTURE OF MEMBRANES
  2. AZITHROMYCIN ANHYDROUS. [Suspect]
     Active Substance: AZITHROMYCIN ANHYDROUS
     Indication: PRETERM PREMATURE RUPTURE OF MEMBRANES
  3. ENOXAPARIN [Suspect]
     Active Substance: ENOXAPARIN
  4. VANCOMYCIN [Suspect]
     Active Substance: VANCOMYCIN
  5. LINEZOLID. [Suspect]
     Active Substance: LINEZOLID
  6. FLAGYL [Suspect]
     Active Substance: METRONIDAZOLE\METRONIDAZOLE HYDROCHLORIDE
  7. BETAMETHASONE. [Suspect]
     Active Substance: BETAMETHASONE
  8. PIPERACILLIN/TAZOBACTAM [Suspect]
     Active Substance: PIPERACILLIN SODIUM\TAZOBACTAM SODIUM
  9. HEPARIN [Suspect]
     Active Substance: HEPARIN SODIUM
     Indication: PULMONARY EMBOLISM
  10. LEVOFLOXACIN. [Suspect]
     Active Substance: LEVOFLOXACIN
  11. PARACETAMOL [Suspect]
     Active Substance: ACETAMINOPHEN
  12. AZTREONAM. [Suspect]
     Active Substance: AZTREONAM

REACTIONS (3)
  - Maternal exposure during pregnancy [None]
  - Preterm premature rupture of membranes [Recovered/Resolved]
  - Premature delivery [Recovered/Resolved]
